FAERS Safety Report 16400169 (Version 2)
Quarter: 2020Q2

REPORT INFORMATION
  Report Type: Spontaneous
  Country: US (occurrence: US)
  Receive Date: 20190606
  Receipt Date: 20200623
  Transmission Date: 20200713
  Serious: No
  Sender: FDA-Public Use
  Company Number: US-ALLERGAN-1917267US

PATIENT
  Age: 52 Year

DRUGS (3)
  1. KYBELLA [Suspect]
     Active Substance: DEOXYCHOLIC ACID
     Indication: FAT TISSUE INCREASED
     Dosage: 5 ML, SINGLE
     Route: 058
     Dates: start: 20180626, end: 20180626
  2. KYBELLA [Suspect]
     Active Substance: DEOXYCHOLIC ACID
     Dosage: 5 ML, SINGLE
     Route: 058
     Dates: start: 20180531, end: 20180531
  3. KYBELLA [Suspect]
     Active Substance: DEOXYCHOLIC ACID
     Dosage: 5 ML, SINGLE
     Route: 058
     Dates: start: 20180405, end: 20180405

REACTIONS (1)
  - Drug ineffective [Unknown]
